FAERS Safety Report 21099064 (Version 1)
Quarter: 2022Q3

REPORT INFORMATION
  Report Type: Spontaneous
  Country: IE (occurrence: IE)
  Receive Date: 20220719
  Receipt Date: 20220719
  Transmission Date: 20221026
  Serious: Yes (Hospitalization)
  Sender: FDA-Public Use
  Company Number: IE-JNJFOC-20220661053

PATIENT
  Sex: Female

DRUGS (2)
  1. VENLAFAXINE [Interacting]
     Active Substance: VENLAFAXINE HYDROCHLORIDE
     Indication: Sleep disorder
     Dosage: UNK
     Route: 065
  2. SPRAVATO [Interacting]
     Active Substance: ESKETAMINE
     Indication: Depression
     Dosage: 56 MILLIGRAM
     Route: 045
     Dates: start: 20220613

REACTIONS (5)
  - Unresponsive to stimuli [Recovering/Resolving]
  - Hemiparesis [Recovering/Resolving]
  - Drug interaction [Recovering/Resolving]
  - Tachycardia [Recovering/Resolving]
  - Incontinence [Recovering/Resolving]

NARRATIVE: CASE EVENT DATE: 20220628
